FAERS Safety Report 9466860 (Version 1)
Quarter: 2013Q3

REPORT INFORMATION
  Report Type: Spontaneous
  Country: US (occurrence: None)
  Receive Date: 20130816
  Receipt Date: 20130816
  Transmission Date: 20140515
  Serious: Yes (Death)
  Sender: FDA-Public Use
  Company Number: UTC-036440

PATIENT
  Age: 69 Year
  Sex: Female
  Weight: 90 kg

DRUGS (2)
  1. TYVASO [Suspect]
     Indication: PULMONARY ARTERIAL HYPERTENSION
     Dosage: 72 MCG ( 18 MCG 4 IN 1 D)
     Route: 055
     Dates: start: 20130729
  2. ADCIRA (TADALIFIL) (UNKNOWN) [Concomitant]

REACTIONS (1)
  - Death [None]
